FAERS Safety Report 5822688-0 (Version None)
Quarter: 2008Q3

REPORT INFORMATION
  Report Type: 
  Country: None (occurrence: None)
  Receive Date: 20080714
  Receipt Date: 20080114
  Transmission Date: 20090109
  Serious: Yes (Other)
  Sender: FDA-Public Use
  Company Number: 540977

PATIENT
  Age: 65 Year
  Sex: Male

DRUGS (2)
  1. BONIVA [Suspect]
     Indication: OSTEOPOROSIS
     Dosage: ORAL
     Route: 048
     Dates: start: 20070901
  2. FOSAMAX [Suspect]
     Indication: OSTEOPOROSIS

REACTIONS (2)
  - GASTRIC ULCER [None]
  - OESOPHAGITIS [None]
